FAERS Safety Report 13402660 (Version 10)
Quarter: 2019Q1

REPORT INFORMATION
  Report Type: Spontaneous
  Country: US (occurrence: US)
  Receive Date: 20170404
  Receipt Date: 20190221
  Transmission Date: 20190417
  Serious: Yes (Hospitalization)
  Sender: FDA-Public Use
  Company Number: US-ACTELION-A-US2017-150797

PATIENT
  Age: 57 Year
  Sex: Female
  Weight: 57.6 kg

DRUGS (15)
  1. OPSUMIT [Suspect]
     Active Substance: MACITENTAN
     Indication: PULMONARY ARTERIAL HYPERTENSION
     Route: 048
  2. SPIRONOLACTONE. [Concomitant]
     Active Substance: SPIRONOLACTONE
     Dosage: 100 MG, QD
     Route: 048
  3. CIPROFLOXACIN. [Concomitant]
     Active Substance: CIPROFLOXACIN
     Dosage: 750 MG, 1 TABLET EVERY WEEK
     Route: 048
  4. POTASSIUM CHLORIDE. [Concomitant]
     Active Substance: POTASSIUM CHLORIDE
     Dosage: 10 MEQ, QD 4 TABLETS
     Route: 048
  5. OMEPRAZOLE. [Concomitant]
     Active Substance: OMEPRAZOLE
     Dosage: 20 MG, QD 1 CAPSULE 2 TIMES A DAY FOR 4 WEEKS
     Route: 048
  6. FUROSEMIDE. [Concomitant]
     Active Substance: FUROSEMIDE
     Dosage: 80 MG, BID
     Route: 048
  7. PAROXETINE. [Concomitant]
     Active Substance: PAROXETINE
     Dosage: 60 MG, QD
     Route: 048
  8. METOLAZONE. [Concomitant]
     Active Substance: METOLAZONE
     Dosage: 2.5 MG, QD
     Route: 048
  9. VELETRI [Suspect]
     Active Substance: EPOPROSTENOL
     Dosage: 31.75 NG/KG, PER MIN
     Route: 042
     Dates: start: 2013
  10. TRIAMCINOLONE ACETONIDE. [Concomitant]
     Active Substance: TRIAMCINOLONE ACETONIDE
     Dosage: 0.1% 2 X DAY
     Route: 061
  11. VELETRI [Suspect]
     Active Substance: EPOPROSTENOL
     Indication: PULMONARY ARTERIAL HYPERTENSION
     Dosage: 43.4 NG/KG, PER MIN
     Route: 042
  12. MORPHINE [Concomitant]
     Active Substance: MORPHINE
     Dosage: 15 MG, 1-2 TABLET S EVERY 6 HOURS
     Route: 048
  13. ALPRAZOLAM. [Concomitant]
     Active Substance: ALPRAZOLAM
     Dosage: 1 MG, QD
     Route: 048
  14. FLUTICASONE. [Concomitant]
     Active Substance: FLUTICASONE
     Dosage: 50 MCG, QD 1-2 SPRAYS IN EACH NOTRIL
     Route: 045
  15. DIGOXIN. [Concomitant]
     Active Substance: DIGOXIN
     Dosage: 125 MCG, QD
     Route: 048

REACTIONS (34)
  - Oedema peripheral [Unknown]
  - Device leakage [Recovered/Resolved]
  - Tremor [Unknown]
  - Pulmonary function test decreased [Unknown]
  - Nausea [Unknown]
  - Vomiting [Unknown]
  - Pulmonary arterial pressure increased [Unknown]
  - Palpitations [Unknown]
  - Migraine [Unknown]
  - Frustration tolerance decreased [Unknown]
  - Anxiety [Unknown]
  - Malaise [Unknown]
  - Dyspnoea exertional [Unknown]
  - Therapy non-responder [Unknown]
  - Dry mouth [Unknown]
  - Nasal congestion [Unknown]
  - Pain in extremity [Unknown]
  - Abdominal distension [Unknown]
  - Dyspnoea [Unknown]
  - Product dose omission [Unknown]
  - Myalgia [Unknown]
  - Chest pain [Unknown]
  - Abdominal pain upper [Unknown]
  - Rash [Unknown]
  - Headache [Unknown]
  - Hypoaesthesia [Unknown]
  - Pain [Unknown]
  - Asthenia [Unknown]
  - Catheter management [Recovered/Resolved]
  - Fatigue [Unknown]
  - Condition aggravated [Unknown]
  - Device breakage [Recovering/Resolving]
  - Presyncope [Unknown]
  - Constipation [Unknown]

NARRATIVE: CASE EVENT DATE: 20170226
